FAERS Safety Report 12870608 (Version 1)
Quarter: 2016Q4

REPORT INFORMATION
  Report Type: Report from Study
  Country: US (occurrence: US)
  Receive Date: 20161020
  Receipt Date: 20161020
  Transmission Date: 20170207
  Serious: No
  Sender: FDA-Public Use
  Company Number: US-AMGEN-USASL2016134495

PATIENT
  Age: 17 Year
  Sex: Female
  Weight: 77 kg

DRUGS (32)
  1. ADVAIR HFA [Concomitant]
     Active Substance: FLUTICASONE PROPIONATE\SALMETEROL XINAFOATE
     Dosage: UNK UNK, BID 2 INHALATIONS BY MOUTH TWO TIMES DAILY
     Dates: start: 20160516
  2. ALBUTEROL SULFATE. [Concomitant]
     Active Substance: ALBUTEROL SULFATE
     Dosage: 1 DF, Q4H
     Dates: start: 20140414
  3. ALVESCO [Concomitant]
     Active Substance: CICLESONIDE
     Dosage: UNK UNK, BID., 1 PUFF TWICE A DAY
     Dates: start: 20160711
  4. FLONASE [Concomitant]
     Active Substance: FLUTICASONE PROPIONATE
     Dosage: UNK
     Dates: start: 20160118
  5. VITAMINE D [Concomitant]
     Dosage: 2 DF, QD
     Dates: start: 20130823
  6. LOW-OGESTREL [Concomitant]
     Active Substance: ETHINYL ESTRADIOL\NORGESTREL
     Dosage: 1 DF, QD AS DIRECTED
     Dates: start: 20140725
  7. LYRICA [Concomitant]
     Active Substance: PREGABALIN
     Dosage: 300 MG, BID
     Route: 048
     Dates: start: 20160118
  8. OMEPRAZOLE. [Concomitant]
     Active Substance: OMEPRAZOLE
     Dosage: 1 DF, QD
     Dates: start: 20160421
  9. COENZYME Q10 [Concomitant]
     Active Substance: UBIDECARENONE
     Dosage: 300 MG, QD, AT LUNCH TIME BY SELF AND AT SCHOOL BY NURSE
     Dates: start: 20121211
  10. FLUDROCORTISONE ACETATE. [Concomitant]
     Active Substance: FLUDROCORTISONE ACETATE
     Dosage: 1 DF, BID
     Dates: start: 20130930
  11. FOLIC ACID. [Concomitant]
     Active Substance: FOLIC ACID
     Dosage: 1 DF, TID
     Dates: start: 20140722
  12. NEURONTIN [Concomitant]
     Active Substance: GABAPENTIN
     Dosage: 1 DF, BID
     Dates: start: 20150506
  13. MELATONIN [Concomitant]
     Active Substance: MELATONIN
     Dosage: UNK (TABLET)
     Dates: start: 20130127
  14. PRILOSEC [Concomitant]
     Active Substance: OMEPRAZOLE MAGNESIUM
     Dosage: 1 DF, BID
     Dates: start: 20160921
  15. PROAIR HFA [Concomitant]
     Active Substance: ALBUTEROL SULFATE
     Dosage: UNK, 2 TO 3 PUFF EVERY 4 TO 6 HOURS AS NEEDED
     Dates: start: 20150120
  16. VITAMIN C [Concomitant]
     Active Substance: ASCORBIC ACID
     Dosage: 1 DF, QD
     Dates: start: 20140725
  17. NEURONTIN [Concomitant]
     Active Substance: GABAPENTIN
     Dosage: UNK (3 CAPSULE IN MORNING, 3 AT NOON, 3 AT 4 PM AND 3 AT NIGHT)
     Dates: start: 20160118
  18. TEGRETOL [Concomitant]
     Active Substance: CARBAMAZEPINE
     Dosage: UNK
     Dates: start: 20160118
  19. NASACORT [Concomitant]
     Active Substance: TRIAMCINOLONE ACETONIDE
     Dosage: UNK
     Dates: start: 20160921
  20. CLARITIN [Concomitant]
     Active Substance: LORATADINE
     Dosage: 1 DF, QD
     Dates: start: 20130823
  21. HYDROCORTISONE. [Concomitant]
     Active Substance: HYDROCORTISONE
     Dosage: 100 MG, QD
     Dates: start: 20160921
  22. QVAR [Concomitant]
     Active Substance: BECLOMETHASONE DIPROPIONATE
     Dosage: UNK INHALE 2 PUFF TWICE DAILY
     Dates: start: 20120709, end: 20170116
  23. ALPHA LIPOIC ACID [Concomitant]
     Active Substance: .ALPHA.-LIPOIC ACID
     Dosage: UNK AS DIRECTED
     Dates: start: 20140725
  24. FLUTICASONE PROPIONATE. [Concomitant]
     Active Substance: FLUTICASONE PROPIONATE
     Dosage: UNK UNK, QD ONE, TWO SPRAYS EACH NOSTRIL
     Dates: start: 20150824
  25. TEGRETOL [Concomitant]
     Active Substance: CARBAMAZEPINE
     Dosage: 2 DF, BID
     Dates: start: 20160829
  26. CORLANOR [Suspect]
     Active Substance: IVABRADINE HYDROCHLORIDE
     Indication: PRODUCT USED FOR UNKNOWN INDICATION
     Dosage: 5 MG, BID
     Route: 048
     Dates: start: 20160921
  27. AMITRIPTYLINE HCL [Concomitant]
     Active Substance: AMITRIPTYLINE
     Dosage: 4 DF, UNK AT A BEDTIME
     Dates: start: 20160118
  28. MONTELUKAST SODIUM. [Concomitant]
     Active Substance: MONTELUKAST SODIUM
     Dosage: 1 DF, UNK AT BED TIME
     Dates: start: 20160516
  29. COENZYME Q10 [Concomitant]
     Active Substance: UBIDECARENONE
     Dosage: UNK (400 MG IN AM, 300 MG AT NOON NAD 300 MG AT 4PM)
     Dates: start: 20111118
  30. MELATONIN [Concomitant]
     Active Substance: MELATONIN
     Dosage: 1 DF, UNK AT BEDTIME(CAPSULE)
     Dates: start: 20160921
  31. MIDODRINE HCL [Concomitant]
     Active Substance: MIDODRINE HYDROCHLORIDE
     Dosage: 2.5 MG, TID
     Route: 048
     Dates: start: 20151118
  32. PROAIR HFA [Concomitant]
     Active Substance: ALBUTEROL SULFATE
     Dosage: UNK ( INHALE 2 PUFF EVERY 4 TO 6 HOURS AS NEEDED)
     Dates: start: 20160516, end: 20170311

REACTIONS (1)
  - Off label use [Unknown]

NARRATIVE: CASE EVENT DATE: 20160921
